FAERS Safety Report 11036530 (Version 1)
Quarter: 2015Q2

REPORT INFORMATION
  Report Type: Report from Study
  Country: DE (occurrence: DE)
  Receive Date: 20150416
  Receipt Date: 20150416
  Transmission Date: 20150821
  Serious: Yes (Hospitalization)
  Sender: FDA-Public Use
  Company Number: PHHO2013DE015418

PATIENT
  Age: 40 Year
  Sex: Male
  Weight: 90 kg

DRUGS (1)
  1. AIN457 [Suspect]
     Active Substance: SECUKINUMAB
     Indication: PSORIASIS
     Dosage: DOSE BLINDED
     Route: 058
     Dates: start: 20130114

REACTIONS (2)
  - Headache [Recovered/Resolved]
  - Gastrointestinal infection [Recovered/Resolved]

NARRATIVE: CASE EVENT DATE: 20131121
